FAERS Safety Report 23718373 (Version 1)
Quarter: 2024Q2

REPORT INFORMATION
  Report Type: Spontaneous
  Country: IN (occurrence: IN)
  Receive Date: 20240408
  Receipt Date: 20240408
  Transmission Date: 20240717
  Serious: Yes (Death)
  Sender: FDA-Public Use
  Company Number: IN-PFIZER INC-PV202300139424

PATIENT
  Age: 78 Year
  Sex: Female

DRUGS (58)
  1. PALBOCICLIB [Suspect]
     Active Substance: PALBOCICLIB
     Indication: Breast cancer metastatic
     Dosage: 75 MG 1X0X0 X21 DAYS ON, 7 DAYS OFF
     Route: 048
     Dates: start: 20221129
  2. PALBOCICLIB [Suspect]
     Active Substance: PALBOCICLIB
     Dosage: 1X0X0 X21 DAYS ON, 7 DAYS OFF
     Route: 048
     Dates: start: 20221214
  3. PALBOCICLIB [Suspect]
     Active Substance: PALBOCICLIB
     Dosage: 75MG 1X0X0 X21 DAYS ON, 7 DAYS OFF
     Route: 048
     Dates: start: 20221228
  4. PALBOCICLIB [Suspect]
     Active Substance: PALBOCICLIB
     Dosage: 1X0X0 X21 DAYS ON, 7 DAYS OFF
     Route: 048
     Dates: start: 20230111
  5. PALBOCICLIB [Suspect]
     Active Substance: PALBOCICLIB
     Dosage: 75MG 1X0X0 X21 DAYS ON, 7 DAYS OFF
     Route: 048
     Dates: start: 20230125
  6. PALBOCICLIB [Suspect]
     Active Substance: PALBOCICLIB
     Dosage: 100MG 1X0X0 X21 DAYS ON, 7 DAYS OFF
     Route: 048
     Dates: start: 20230222
  7. PALBOCICLIB [Suspect]
     Active Substance: PALBOCICLIB
     Dosage: 100MG 1X0X0 X21 DAYS ON, 7 DAYS OFF
     Route: 048
     Dates: start: 20230324
  8. PALBOCICLIB [Suspect]
     Active Substance: PALBOCICLIB
     Dosage: 100MG ORAL, 1X0X0 X21 DAYS ON AND 7 DAYS OFF
     Route: 048
     Dates: start: 20230520
  9. PALBOCICLIB [Suspect]
     Active Substance: PALBOCICLIB
     Dosage: 100MG ORAL, 1X0X0 X21 DAYS ON AND 7 DAYS OFF
     Route: 048
     Dates: start: 20230619
  10. PALBOCICLIB [Suspect]
     Active Substance: PALBOCICLIB
     Dosage: 100MG ORAL, 1X0X0 X21 DAYS ON AND 7 DAYS OFF
     Route: 048
     Dates: start: 20230718
  11. DENOSUMAB [Concomitant]
     Active Substance: DENOSUMAB
     Dosage: 120 MG STAT
     Route: 058
     Dates: start: 20221130
  12. DENOSUMAB [Concomitant]
     Active Substance: DENOSUMAB
     Dosage: 120 MG
     Route: 058
     Dates: start: 20221228
  13. DENOSUMAB [Concomitant]
     Active Substance: DENOSUMAB
     Dosage: 120 MG
     Route: 058
     Dates: start: 20230125
  14. DENOSUMAB [Concomitant]
     Active Substance: DENOSUMAB
     Dosage: 120 MG
     Route: 058
     Dates: start: 20230222
  15. DENOSUMAB [Concomitant]
     Active Substance: DENOSUMAB
     Dosage: UNK
     Dates: start: 20230320
  16. DENOSUMAB [Concomitant]
     Active Substance: DENOSUMAB
     Dosage: 120 MG
     Route: 058
     Dates: start: 20230324
  17. DENOSUMAB [Concomitant]
     Active Substance: DENOSUMAB
     Dosage: 120 MG
     Route: 058
     Dates: start: 20230520
  18. DENOSUMAB [Concomitant]
     Active Substance: DENOSUMAB
     Dosage: 120 MG
     Route: 058
     Dates: start: 20230619
  19. DENOSUMAB [Concomitant]
     Active Substance: DENOSUMAB
     Dosage: 120 MG
     Route: 058
     Dates: start: 20230718
  20. FASLODEX [Concomitant]
     Active Substance: FULVESTRANT
     Dosage: 250MG EACH BUTTOCK
     Route: 030
     Dates: start: 20221130
  21. FASLODEX [Concomitant]
     Active Substance: FULVESTRANT
     Dosage: 500 MG 250MG EACH BUTTOCK (MONTH 1/DAY 15)
     Route: 030
     Dates: start: 20221214
  22. FASLODEX [Concomitant]
     Active Substance: FULVESTRANT
     Dosage: 500 MG (250MG EACH BUTTOCK) (3RD CYCLE (2ND MONTH))
     Route: 030
     Dates: start: 20221228
  23. FASLODEX [Concomitant]
     Active Substance: FULVESTRANT
     Dosage: 250MG IM EACH BUTTOCK, 4TH CYCLE (3RD MONTH)
     Route: 030
     Dates: start: 20230125
  24. FASLODEX [Concomitant]
     Active Substance: FULVESTRANT
     Dosage: 250MG IM EACH BUTTOCK
     Route: 030
     Dates: start: 20230222
  25. FASLODEX [Concomitant]
     Active Substance: FULVESTRANT
     Dosage: 250MG IM EACH BUTTOCK
     Route: 030
     Dates: start: 20230324
  26. FASLODEX [Concomitant]
     Active Substance: FULVESTRANT
     Dosage: 250MG IM EACH BUTTOCK (TOTAL 500MG)
     Route: 030
     Dates: start: 20230520
  27. FASLODEX [Concomitant]
     Active Substance: FULVESTRANT
     Dosage: 250MG IM EACH BUTTOCK (TOTAL 500MG)
     Route: 030
     Dates: start: 20230619
  28. FASLODEX [Concomitant]
     Active Substance: FULVESTRANT
     Dosage: 250MG IM EACH BUTTOCK (TOTAL 500MG)
     Route: 030
     Dates: start: 20230718
  29. PREDNISOLONE [Concomitant]
     Active Substance: PREDNISOLONE
     Dosage: 20 MG 1X0X1 X7 DAYS AFTER FOOD
     Dates: start: 20221130
  30. PREDNISOLONE [Concomitant]
     Active Substance: PREDNISOLONE
     Dosage: 10 MG 1X0X1 X7 DAYS AFTER FOOD
     Dates: start: 20221214
  31. PREDNISOLONE [Concomitant]
     Active Substance: PREDNISOLONE
     Dosage: 7.5 MG 1X0X1 X5 DAYS THAN
     Dates: start: 20221228
  32. PREDNISOLONE [Concomitant]
     Active Substance: PREDNISOLONE
     Dosage: 1X0X1 X5 DAYS THAN
     Dates: start: 20221228
  33. PREDNISOLONE [Concomitant]
     Active Substance: PREDNISOLONE
     Dosage: 1X0X0 X5 DAYS THAN
     Dates: start: 20221228
  34. PREDNISOLONE [Concomitant]
     Active Substance: PREDNISOLONE
     Dosage: 1X0X0
     Dates: start: 20230324
  35. VELOZ D [Concomitant]
     Dosage: 1X0X1 CONTINUE BEFORE FOOD
  36. CRESP [Concomitant]
     Dosage: 200 MG
     Route: 058
     Dates: start: 20221228
  37. CRESP [Concomitant]
     Dosage: 200 MG
     Route: 058
     Dates: start: 20230111
  38. CRESP [Concomitant]
     Dosage: 200 MG
     Route: 058
     Dates: start: 20230125
  39. CRESP [Concomitant]
     Dosage: 200 MG
     Route: 058
     Dates: start: 20230227
  40. CRESP [Concomitant]
     Dosage: 200 MG S/C EVERY 15 DAYS
     Route: 058
     Dates: start: 20230324
  41. CRESP [Concomitant]
     Dosage: 200 MG S/C EVERY 15 DAYS (NEXT DOSE ON 03JUN2023)
     Route: 058
     Dates: start: 20230520
  42. CRESP [Concomitant]
     Dosage: 200 MG S/C EVERY 15 DAYS (NEXT DOSE ON 03JUN2023)
     Route: 058
     Dates: start: 20230619
  43. CRESP [Concomitant]
     Dosage: 200 MG S/C EVERY 15 DAYS (NEXT DOSE ON 03JUN2023)
     Route: 058
     Dates: start: 20230718
  44. FDSON MP [Concomitant]
     Dosage: 1X0X1 TO CONTINUE
     Dates: start: 20221228
  45. FDSON MP [Concomitant]
     Dosage: 1X0X1
     Dates: start: 20230111
  46. FDSON MP [Concomitant]
     Dosage: 1X0X1
     Dates: start: 20230125
  47. FDSON MP [Concomitant]
     Dosage: 1X0X1
     Dates: start: 20230222
  48. FDSON MP [Concomitant]
     Dosage: 1X0X1
     Dates: start: 20230324
  49. FDSON MP [Concomitant]
     Dosage: 0X1X0 CONTINUED,
     Route: 048
     Dates: start: 20230520
  50. FDSON MP [Concomitant]
     Dosage: 0X1X0 CONTINUED
     Route: 048
     Dates: start: 20230619
  51. FDSON MP [Concomitant]
     Dosage: 0X1X0 CONTINUED
     Route: 048
     Dates: start: 20230718
  52. CCM [CALCIUM CARBONATE] [Concomitant]
     Dosage: 1X0X1
     Dates: start: 20230111
  53. CCM [CALCIUM CARBONATE] [Concomitant]
     Dosage: 1X0X0
     Dates: start: 20230125
  54. CCM [CALCIUM CARBONATE] [Concomitant]
     Dosage: 1X0X0
     Dates: start: 20230222
  55. CCM [CALCIUM CARBONATE] [Concomitant]
     Dosage: 1X0X0
     Dates: start: 20230324
  56. CCM [CALCIUM CARBONATE] [Concomitant]
     Dosage: 1X0X0 CONTINUED
     Route: 048
     Dates: start: 20230520
  57. CCM [CALCIUM CARBONATE] [Concomitant]
     Dosage: 1X0X0 CONTINUED
     Route: 048
     Dates: start: 20230619
  58. SHELCAL XT [Concomitant]
     Dosage: 1X0X0 CONTINUED
     Route: 048
     Dates: start: 20230718

REACTIONS (13)
  - Death [Fatal]
  - Face oedema [Unknown]
  - Full blood count abnormal [Unknown]
  - Oedema peripheral [Unknown]
  - Asthenia [Unknown]
  - Decreased appetite [Unknown]
  - Pelvic pain [Unknown]
  - Pyrexia [Unknown]
  - Dyspnoea [Unknown]
  - Back pain [Unknown]
  - Tenderness [Unknown]
  - Myalgia [Unknown]
  - Depression [Unknown]

NARRATIVE: CASE EVENT DATE: 20221214
